FAERS Safety Report 9305147 (Version 1)
Quarter: 2013Q2

REPORT INFORMATION
  Report Type: Report from Study
  Country: AR (occurrence: AR)
  Receive Date: 20130523
  Receipt Date: 20130523
  Transmission Date: 20140414
  Serious: Yes (Hospitalization, Other)
  Sender: FDA-Public Use
  Company Number: PHHY2013AR051089

PATIENT
  Sex: Male

DRUGS (4)
  1. DIOVAN [Suspect]
     Indication: HYPERTENSION
     Dosage: 160 MG (1DF), DAILY
     Route: 048
     Dates: start: 2009
  2. AAS [Concomitant]
     Dosage: UNK UKN, UNK
  3. ATORVASTATIN [Concomitant]
     Dosage: UNK UKN, UNK
  4. ANXIOLYTICS [Concomitant]
     Dosage: UNK UKN, UNK

REACTIONS (3)
  - Respiratory tract infection fungal [Recovering/Resolving]
  - Hypertension [Recovered/Resolved]
  - Nervousness [Unknown]
